FAERS Safety Report 8850796 (Version 4)
Quarter: 2012Q4

REPORT INFORMATION
  Report Type: 
  Country: US (occurrence: US)
  Receive Date: 20121019
  Receipt Date: 20121221
  Transmission Date: 20130627
  Serious: Yes (Death, Hospitalization, Other)
  Sender: FDA-Public Use
  Company Number: US-GENZYME-CLOF-1002352

PATIENT
  Age: 42 Year
  Sex: Female
  Weight: 88.9 kg

DRUGS (13)
  1. CLOLAR [Suspect]
     Indication: ACUTE MYELOID LEUKAEMIA
     Dosage: 76 mg (40 mg/m2), qd
     Route: 042
     Dates: start: 20120905, end: 20120909
  2. BUSULFAN [Suspect]
     Indication: ACUTE MYELOID LEUKAEMIA
     Dosage: UNK
     Route: 065
     Dates: start: 2012
  3. CIDOFOVIR [Suspect]
     Indication: ADENOVIRUS INFECTION
     Dosage: 40 mg, once (1 dose)
     Route: 042
     Dates: start: 20120928
  4. CIDOFOVIR [Suspect]
     Indication: BK VIRUS INFECTION
  5. TACROLIMUS [Concomitant]
     Indication: PRODUCT USED FOR UNKNOWN INDICATION
     Dosage: UNK
     Route: 048
  6. VANCOMYCIN [Concomitant]
     Indication: PRODUCT USED FOR UNKNOWN INDICATION
     Dosage: UNK
     Route: 042
  7. CONTRACEPTIVES NOS [Concomitant]
     Indication: CONTRACEPTION
     Dosage: UNK
     Route: 048
  8. VORICONAZOLE [Concomitant]
     Indication: PRODUCT USED FOR UNKNOWN INDICATION
     Dosage: UNK
     Route: 048
  9. CELLCEPT [Concomitant]
     Indication: PRODUCT USED FOR UNKNOWN INDICATION
     Dosage: UNK
     Route: 048
  10. ACYCLOVIR [Concomitant]
     Indication: PRODUCT USED FOR UNKNOWN INDICATION
     Dosage: UNK
     Route: 048
  11. LEVAQUIN [Concomitant]
     Indication: PRODUCT USED FOR UNKNOWN INDICATION
     Dosage: UNK
     Route: 048
  12. VITAMIN D NOS [Concomitant]
     Indication: PRODUCT USED FOR UNKNOWN INDICATION
     Dosage: UNK
     Route: 048
  13. MORPHINE [Concomitant]
     Indication: PRODUCT USED FOR UNKNOWN INDICATION
     Dosage: UNK
     Route: 048

REACTIONS (12)
  - Malnutrition [Fatal]
  - Nausea [Recovered/Resolved]
  - Vomiting [Recovered/Resolved]
  - Acute hepatic failure [Fatal]
  - Metabolic acidosis [Fatal]
  - Multi-organ failure [Fatal]
  - Renal failure acute [Fatal]
  - Lobar pneumonia [Recovered/Resolved]
  - Staphylococcal infection [Recovered/Resolved]
  - Hypotension [Fatal]
  - BK virus infection [Fatal]
  - Pericardial effusion [Fatal]
